FAERS Safety Report 4565797-9 (Version None)
Quarter: 2005Q1

REPORT INFORMATION
  Report Type: 
  Country: None (occurrence: None)
  Receive Date: 20050128
  Receipt Date: 20050119
  Transmission Date: 20050727
  Serious: Yes (Other)
  Sender: FDA-Public Use
  Company Number: 2005017110

PATIENT
  Age: 75 Year
  Sex: Male

DRUGS (3)
  1. XALATAN [Suspect]
     Indication: ILL-DEFINED DISORDER
     Dosage: OPHTHALMIC
     Route: 047
  2. NSAID'S (NSAID'S) [Suspect]
     Indication: ILL-DEFINED DISORDER
  3. BRINZOLAMIDE (BRINZOLAMIDE) [Concomitant]

REACTIONS (4)
  - DRUG INEFFECTIVE [None]
  - DRUG INTERACTION INHIBITION [None]
  - INTRAOCULAR PRESSURE INCREASED [None]
  - POST PROCEDURAL COMPLICATION [None]
